FAERS Safety Report 7283899-3 (Version None)
Quarter: 2011Q1

REPORT INFORMATION
  Report Type: 
  Country: None (occurrence: None)
  Receive Date: 20110209
  Receipt Date: 20110131
  Transmission Date: 20110831
  Serious: Yes (Hospitalization)
  Sender: FDA-Public Use
  Company Number: US-CELGENEUS-163-21880-11020486

PATIENT
  Sex: Female
  Weight: 65.3 kg

DRUGS (2)
  1. REVLIMID [Suspect]
     Route: 048
     Dates: start: 20110201
  2. REVLIMID [Suspect]
     Indication: MULTIPLE MYELOMA
     Route: 048
     Dates: start: 20101105

REACTIONS (4)
  - SKIN ULCER [None]
  - FULL BLOOD COUNT DECREASED [None]
  - SKIN BURNING SENSATION [None]
  - ERYTHEMA [None]
